FAERS Safety Report 9902204 (Version 2)
Quarter: 2014Q3

REPORT INFORMATION
  Report Type: Spontaneous
  Country: US (occurrence: US)
  Receive Date: 20140217
  Receipt Date: 20140731
  Transmission Date: 20150326
  Serious: Yes (Hospitalization, Other)
  Sender: FDA-Public Use
  Company Number: US-009507513-1402USA007295

PATIENT
  Sex: Female
  Weight: 97.51 kg

DRUGS (1)
  1. NUVARING [Suspect]
     Active Substance: ETHINYL ESTRADIOL\ETONOGESTREL
     Dosage: UNK
     Route: 067
     Dates: start: 20130531, end: 20131105

REACTIONS (9)
  - Cholecystectomy [Unknown]
  - Pneumonia [Unknown]
  - Malaise [Unknown]
  - Pulmonary embolism [Unknown]
  - Electrocardiogram ST-T change [Unknown]
  - Deep vein thrombosis [Unknown]
  - Abdominal pain [Unknown]
  - Ovarian mass [Unknown]
  - Fatigue [Unknown]

NARRATIVE: CASE EVENT DATE: 20131031
